FAERS Safety Report 6185681-7 (Version None)
Quarter: 2009Q2

REPORT INFORMATION
  Report Type: 
  Country: None (occurrence: None)
  Receive Date: 20090511
  Receipt Date: 20090507
  Transmission Date: 20091009
  Serious: Yes (Death, Other)
  Sender: FDA-Public Use
  Company Number: PHHY2009IE14683

PATIENT
  Sex: Female

DRUGS (10)
  1. EXELON [Suspect]
     Indication: PARKINSON'S DISEASE
     Dosage: 4.6 MG/24 H
     Route: 062
     Dates: start: 20090216
  2. EXELON [Suspect]
     Indication: DEMENTIA WITH LEWY BODIES
     Dosage: 9.5 MG/24 H
     Route: 062
     Dates: start: 20090301
  3. MADOPAR CR [Concomitant]
     Dosage: 125 MG, QID
  4. MIRAPEX [Concomitant]
     Dosage: 0.18 MG, TID
  5. SYMMETREL [Concomitant]
     Dosage: 100 MG
  6. SINEMET CR [Concomitant]
  7. TASMAR [Concomitant]
     Dosage: 100 MG, TID
  8. XANAX [Concomitant]
     Dosage: 0.25 MG MANE, 0.5 NOCTE
  9. MADOPAR [Concomitant]
     Dosage: 62/5 PRN (6 HOURLY)
  10. SEROQUEL [Concomitant]
     Dosage: 100 MG NOCTE

REACTIONS (3)
  - DIZZINESS [None]
  - FALL [None]
  - MYOCARDIAL INFARCTION [None]
